FAERS Safety Report 15901894 (Version 1)
Quarter: 2019Q1

REPORT INFORMATION
  Report Type: Spontaneous
  Country: US (occurrence: US)
  Receive Date: 20190111
  Receipt Date: 20190111
  Transmission Date: 20190417
  Serious: No
  Sender: FDA-Public Use
  Company Number: None

PATIENT
  Age: 49 Year
  Sex: Male
  Weight: 102 kg

DRUGS (1)
  1. DESCOVY [Suspect]
     Active Substance: EMTRICITABINE\TENOFOVIR ALAFENAMIDE FUMARATE
     Route: 048
     Dates: start: 20170208, end: 20181219

REACTIONS (4)
  - Blood creatinine increased [None]
  - Hypophosphataemia [None]
  - Proteinuria [None]
  - Condition aggravated [None]

NARRATIVE: CASE EVENT DATE: 20181204
